FAERS Safety Report 12214611 (Version 1)
Quarter: 2016Q1

REPORT INFORMATION
  Report Type: Spontaneous
  Country: FR (occurrence: FR)
  Receive Date: 20160328
  Receipt Date: 20160328
  Transmission Date: 20160526
  Serious: Yes (Hospitalization, Other)
  Sender: FDA-Public Use
  Company Number: FR-BAXTER-2016BAX013834

PATIENT
  Age: 14 Year
  Sex: Male
  Weight: 56 kg

DRUGS (7)
  1. LANVIS [Suspect]
     Active Substance: THIOGUANINE ANHYDROUS
     Indication: PRECURSOR T-LYMPHOBLASTIC LYMPHOMA/LEUKAEMIA STAGE IV
     Dosage: FROM DAY 36 TO DAY 49
     Route: 048
     Dates: start: 20151218
  2. METHOTREXATE BIODIM [Suspect]
     Active Substance: METHOTREXATE
     Indication: PRECURSOR T-LYMPHOBLASTIC LYMPHOMA/LEUKAEMIA STAGE IV
     Dosage: FROM DAY 38 TO DAY 45
     Route: 037
     Dates: start: 20151220
  3. LASILIX [Concomitant]
     Active Substance: FUROSEMIDE
     Indication: PRECURSOR T-LYMPHOBLASTIC LYMPHOMA/LEUKAEMIA STAGE IV
     Dosage: ON DAY 36
     Route: 042
  4. ENDOXAN 1000 MG, POUDRE POUR SOLUTION INJECTABLE [Suspect]
     Active Substance: CYCLOPHOSPHAMIDE
     Indication: PRECURSOR T-LYMPHOBLASTIC LYMPHOMA/LEUKAEMIA STAGE IV
     Dosage: INFUSION, ON DAY 36
     Route: 042
     Dates: start: 20151218
  5. MESNA EG [Suspect]
     Active Substance: MESNA
     Indication: PRECURSOR T-LYMPHOBLASTIC LYMPHOMA/LEUKAEMIA STAGE IV
     Dosage: 563.5 (UNITS NOT REPORTED) ON DAY 36
     Route: 042
     Dates: start: 20151218
  6. CYTARABINE SANDOZ [Suspect]
     Active Substance: CYTARABINE
     Dosage: FROM DAY 45 TO DAY 48
     Route: 042
  7. CYTARABINE SANDOZ [Suspect]
     Active Substance: CYTARABINE
     Indication: PRECURSOR T-LYMPHOBLASTIC LYMPHOMA/LEUKAEMIA STAGE IV
     Dosage: FROM DAY 38 TO DAY 41
     Route: 042
     Dates: start: 20151220

REACTIONS (2)
  - Condition aggravated [Recovering/Resolving]
  - Bone marrow failure [Recovering/Resolving]

NARRATIVE: CASE EVENT DATE: 201512
